FAERS Safety Report 23679623 (Version 1)
Quarter: 2024Q1

REPORT INFORMATION
  Report Type: Spontaneous
  Country: US (occurrence: US)
  Receive Date: 20240327
  Receipt Date: 20240327
  Transmission Date: 20240410
  Serious: No
  Sender: FDA-Public Use
  Company Number: US-ELI_LILLY_AND_COMPANY-US202403015561

PATIENT
  Age: 64 Year
  Sex: Female

DRUGS (16)
  1. MOUNJARO [Suspect]
     Active Substance: TIRZEPATIDE
     Indication: Diabetes mellitus
     Dosage: 2.5 MG, UNKNOWN
     Route: 058
     Dates: start: 202402
  2. MOUNJARO [Suspect]
     Active Substance: TIRZEPATIDE
     Indication: Diabetes mellitus
     Dosage: 2.5 MG, UNKNOWN
     Route: 058
     Dates: start: 202402
  3. MOUNJARO [Suspect]
     Active Substance: TIRZEPATIDE
     Indication: Diabetes mellitus
     Dosage: 2.5 MG, UNKNOWN
     Route: 058
     Dates: start: 202402
  4. MOUNJARO [Suspect]
     Active Substance: TIRZEPATIDE
     Indication: Diabetes mellitus
     Dosage: 2.5 MG, UNKNOWN
     Route: 058
     Dates: start: 202402
  5. MOUNJARO [Suspect]
     Active Substance: TIRZEPATIDE
     Indication: Weight control
  6. MOUNJARO [Suspect]
     Active Substance: TIRZEPATIDE
     Indication: Weight control
  7. MOUNJARO [Suspect]
     Active Substance: TIRZEPATIDE
     Indication: Weight control
  8. MOUNJARO [Suspect]
     Active Substance: TIRZEPATIDE
     Indication: Weight control
  9. MOUNJARO [Suspect]
     Active Substance: TIRZEPATIDE
     Indication: Diabetes mellitus
     Dosage: 5 MG, UNKNOWN
     Route: 058
  10. MOUNJARO [Suspect]
     Active Substance: TIRZEPATIDE
     Indication: Diabetes mellitus
     Dosage: 5 MG, UNKNOWN
     Route: 058
  11. MOUNJARO [Suspect]
     Active Substance: TIRZEPATIDE
     Indication: Diabetes mellitus
     Dosage: 5 MG, UNKNOWN
     Route: 058
  12. MOUNJARO [Suspect]
     Active Substance: TIRZEPATIDE
     Indication: Diabetes mellitus
     Dosage: 5 MG, UNKNOWN
     Route: 058
  13. MOUNJARO [Suspect]
     Active Substance: TIRZEPATIDE
     Indication: Weight control
  14. MOUNJARO [Suspect]
     Active Substance: TIRZEPATIDE
     Indication: Weight control
  15. MOUNJARO [Suspect]
     Active Substance: TIRZEPATIDE
     Indication: Weight control
  16. MOUNJARO [Suspect]
     Active Substance: TIRZEPATIDE
     Indication: Weight control

REACTIONS (2)
  - Injection site irritation [Recovered/Resolved]
  - Injection site urticaria [Recovered/Resolved]
